FAERS Safety Report 8839856 (Version 1)
Quarter: 2012Q4

REPORT INFORMATION
  Report Type: 
  Country: US (occurrence: US)
  Receive Date: 20121015
  Receipt Date: 20121015
  Transmission Date: 20130627
  Serious: No
  Sender: FDA-Public Use
  Company Number: US-BRISTOL-MYERS SQUIBB COMPANY-16846487

PATIENT
  Age: 51 Year
  Sex: Female
  Weight: 54.87 kg

DRUGS (1)
  1. KENALOG-10 INJ [Suspect]
     Dates: start: 20110105

REACTIONS (2)
  - Wound [Unknown]
  - Skin disorder [Unknown]
